FAERS Safety Report 5500748-1 (Version None)
Quarter: 2007Q4

REPORT INFORMATION
  Report Type: 
  Country: None (occurrence: None)
  Receive Date: 20071019
  Receipt Date: 20070809
  Transmission Date: 20080405
  Serious: Yes (Other)
  Sender: FDA-Public Use
  Company Number: HQWYE523010AUG07

PATIENT
  Age: 83 Year
  Sex: Female

DRUGS (3)
  1. ADVIL PM (IBUPROFEN/DIPHENHYDRAMINE, CAPSULE, LIQUID FILLED) [Suspect]
     Indication: INSOMNIA
     Dosage: 1 CAPSULE AS NEEDED, ORAL
     Route: 048
     Dates: start: 20070601
  2. ADVIL PM (IBUPROFEN/DIPHENHYDRAMINE, CAPSULE, LIQUID FILLED) [Suspect]
     Indication: PAIN
     Dosage: 1 CAPSULE AS NEEDED, ORAL
     Route: 048
     Dates: start: 20070601
  3. SYNTHROID [Concomitant]

REACTIONS (2)
  - DYSPHAGIA [None]
  - THROAT IRRITATION [None]
